FAERS Safety Report 9153432 (Version 1)
Quarter: 2013Q1

REPORT INFORMATION
  Report Type: Spontaneous
  Country: US (occurrence: None)
  Receive Date: 20130306
  Receipt Date: 20130306
  Transmission Date: 20140127
  Serious: No
  Sender: FDA-Public Use
  Company Number: None

PATIENT
  Age: 63 Year
  Sex: Female
  Weight: 105.24 kg

DRUGS (3)
  1. CYMBALTA [Suspect]
     Indication: NEUROPATHY PERIPHERAL
     Dosage: 30MG  1X PER DAT  PO?4 MONTHS OR LESS
     Route: 048
     Dates: start: 20121022, end: 20130228
  2. CYMBALTA [Suspect]
     Indication: ARTHRITIS
     Dosage: 30MG  1X PER DAT  PO?4 MONTHS OR LESS
     Route: 048
     Dates: start: 20121022, end: 20130228
  3. CYMBALTA [Suspect]
     Dosage: 30MG  1X PER DAT  PO?4 MONTHS OR LESS
     Route: 048
     Dates: start: 20121022, end: 20130228

REACTIONS (1)
  - Drug withdrawal syndrome [None]
